FAERS Safety Report 16308715 (Version 1)
Quarter: 2019Q2

REPORT INFORMATION
  Report Type: Spontaneous
  Country: IT (occurrence: IT)
  Receive Date: 20190514
  Receipt Date: 20190514
  Transmission Date: 20190711
  Serious: Yes (Other)
  Sender: FDA-Public Use
  Company Number: IT-TEVA-2019-IT-1049527

PATIENT
  Age: 84 Year
  Sex: Male

DRUGS (1)
  1. METHOTREXATE. [Suspect]
     Active Substance: METHOTREXATE
     Indication: RHEUMATOID ARTHRITIS
     Route: 065

REACTIONS (8)
  - Blood creatinine increased [Unknown]
  - Mucocutaneous ulceration [Recovering/Resolving]
  - Toxicity to various agents [Recovering/Resolving]
  - Blood folate decreased [Unknown]
  - Odynophagia [Unknown]
  - Neutrophil count increased [Unknown]
  - Lymphopenia [Unknown]
  - Transaminases increased [Unknown]
